FAERS Safety Report 8725698 (Version 3)
Quarter: 2013Q1

REPORT INFORMATION
  Report Type: Spontaneous
  Country: US (occurrence: US)
  Receive Date: 20120815
  Receipt Date: 20130117
  Transmission Date: 20140127
  Serious: Yes (Hospitalization)
  Sender: FDA-Public Use
  Company Number: US-BAYER-2012-081714

PATIENT
  Age: 37 Year
  Sex: Female

DRUGS (2)
  1. BEYAZ [Suspect]
     Indication: CONTRACEPTION
     Dosage: UNK
  2. VALACICLOVIR [Concomitant]
     Dosage: DAILY DOSE 1 MG
     Route: 048
     Dates: start: 20120423

REACTIONS (3)
  - Thrombosis [Recovering/Resolving]
  - Thrombosis [Recovering/Resolving]
  - Deep vein thrombosis [Recovered/Resolved]
